FAERS Safety Report 17103327 (Version 1)
Quarter: 2019Q4

REPORT INFORMATION
  Report Type: Spontaneous
  Country: US (occurrence: US)
  Receive Date: 20191107
  Receipt Date: 20191107
  Transmission Date: 20200122
  Serious: No
  Sender: FDA-Public Use
  Company Number: None

PATIENT
  Age: 52 Year
  Sex: Female

DRUGS (8)
  1. OMEPRAZOLE. [Concomitant]
     Active Substance: OMEPRAZOLE
  2. URSODIOL. [Concomitant]
     Active Substance: URSODIOL
  3. OXYBUTYNIN. [Concomitant]
     Active Substance: OXYBUTYNIN CHLORIDE
  4. TOPAMAX [Concomitant]
     Active Substance: TOPIRAMATE
  5. COQ10 [Concomitant]
     Active Substance: UBIDECARENONE
  6. GABAPENTIN. [Concomitant]
     Active Substance: GABAPENTIN
  7. OCALIVA [Suspect]
     Active Substance: OBETICHOLIC ACID
     Indication: PRIMARY BILIARY CHOLANGITIS
     Dates: start: 20190416
  8. VITAMIN D3 [Concomitant]
     Active Substance: CHOLECALCIFEROL

REACTIONS (2)
  - Full blood count increased [None]
  - Renal impairment [None]

NARRATIVE: CASE EVENT DATE: 20191106
